FAERS Safety Report 5490774-3 (Version None)
Quarter: 2007Q4

REPORT INFORMATION
  Report Type: 
  Country: None (occurrence: None)
  Receive Date: 20071019
  Receipt Date: 20071008
  Transmission Date: 20080405
  Serious: Yes (Life-Threatening, Hospitalization)
  Sender: FDA-Public Use
  Company Number: FR-AMGEN-US208229

PATIENT
  Sex: Female

DRUGS (5)
  1. ENBREL [Suspect]
     Indication: RHEUMATOID ARTHRITIS
     Dosage: 50 MG TOTAL WEEKLY
     Route: 058
     Dates: start: 20041001, end: 20061101
  2. NOVATREX [Suspect]
     Indication: RHEUMATOID ARTHRITIS
     Dosage: 12.5 MG TOTAL WEEKLY
     Route: 048
     Dates: start: 20040601, end: 20061101
  3. SULFARLEM [Concomitant]
     Indication: SICCA SYNDROME
     Dosage: UNKNOWN
     Route: 048
  4. ESTREVA [Concomitant]
     Indication: HORMONE REPLACEMENT THERAPY
     Dosage: UNKNOWN
  5. UTROGESTAN [Concomitant]
     Indication: HORMONE REPLACEMENT THERAPY
     Dosage: UNKNOWN

REACTIONS (6)
  - ACINETOBACTER INFECTION [None]
  - ACUTE MYELOMONOCYTIC LEUKAEMIA [None]
  - EOSINOPHIL COUNT INCREASED [None]
  - GASTROENTERITIS [None]
  - HOT FLUSH [None]
  - PRURITUS [None]
